FAERS Safety Report 4589756-5 (Version None)
Quarter: 2005Q1

REPORT INFORMATION
  Report Type: 
  Country: None (occurrence: None)
  Receive Date: 20050217
  Receipt Date: 20050208
  Transmission Date: 20050727
  Serious: Yes (Death, Life-Threatening)
  Sender: FDA-Public Use
  Company Number: Z002-302-6-0023

PATIENT
  Age: 72 Year
  Sex: Female

DRUGS (11)
  1. ZONEGRAN [Suspect]
     Indication: PARKINSON'S DISEASE
     Dosage: 25 MG, 1 IN 1 D, ORAL; 50 MG, 1 IN 1 D, ORAL
     Route: 048
     Dates: start: 20040608, end: 20040705
  2. ZONEGRAN [Suspect]
     Indication: PARKINSON'S DISEASE
     Dosage: 25 MG, 1 IN 1 D, ORAL; 50 MG, 1 IN 1 D, ORAL
     Route: 048
     Dates: start: 20040706, end: 20050203
  3. SYMMETREL [Concomitant]
  4. PERMAX [Concomitant]
  5. BI-SIFROL (PRAMIPEXOLE HYDROCHLORIDE HYDRATE) (PRAMIPEXOLE) [Concomitant]
  6. SELEGILINE HYDROCHLORIDE (SELEGILINE HYDROCHLORIDE) [Concomitant]
  7. DOPS (DROXIDOPA) [Concomitant]
  8. GASMOTIN (MOSAPRIDE CITRATE) [Concomitant]
  9. FLORINEF [Concomitant]
  10. PURSENNID (SENNA LEAF) [Concomitant]
  11. MADOPAR (MADOPAR) [Concomitant]

REACTIONS (8)
  - BRONCHITIS ACUTE [None]
  - CALCULUS URETERIC [None]
  - CARDIO-RESPIRATORY ARREST [None]
  - CEREBRAL DISORDER [None]
  - CONSTIPATION [None]
  - HYPERKALAEMIA [None]
  - HYPOTENSION [None]
  - UPPER RESPIRATORY TRACT INFLAMMATION [None]
